FAERS Safety Report 16137856 (Version 1)
Quarter: 2019Q2

REPORT INFORMATION
  Report Type: Report from Study
  Country: JP (occurrence: JP)
  Receive Date: 20190401
  Receipt Date: 20190401
  Transmission Date: 20190711
  Serious: Yes (Other)
  Sender: FDA-Public Use
  Company Number: JP-GLAXOSMITHKLINE-JP2019JPN054317

PATIENT
  Age: 23 Year
  Sex: Male

DRUGS (1)
  1. LAMOTRIGINE. [Suspect]
     Active Substance: LAMOTRIGINE
     Dosage: UNK
     Route: 048

REACTIONS (4)
  - Human herpesvirus 6 infection [Unknown]
  - Hepatic function abnormal [Unknown]
  - Rash papular [Unknown]
  - Drug reaction with eosinophilia and systemic symptoms [Unknown]
